FAERS Safety Report 15579842 (Version 1)
Quarter: 2018Q4

REPORT INFORMATION
  Report Type: Spontaneous
  Country: US (occurrence: US)
  Receive Date: 20181102
  Receipt Date: 20181102
  Transmission Date: 20190205
  Serious: Yes (Hospitalization, Other)
  Sender: FDA-Public Use
  Company Number: None

PATIENT
  Age: 31 Year
  Sex: Female
  Weight: 65.25 kg

DRUGS (1)
  1. LEVOFLOXACIN 500MG [Suspect]
     Active Substance: LEVOFLOXACIN
     Indication: PNEUMONIA
     Dosage: ?          QUANTITY:1 TABLET(S);?
     Route: 048
     Dates: start: 20181025, end: 20181028

REACTIONS (7)
  - Headache [None]
  - Musculoskeletal stiffness [None]
  - Deafness [None]
  - Vision blurred [None]
  - Tendon pain [None]
  - Neck pain [None]
  - Migraine [None]

NARRATIVE: CASE EVENT DATE: 20181025
